FAERS Safety Report 20730218 (Version 2)
Quarter: 2022Q4

REPORT INFORMATION
  Report Type: Spontaneous
  Country: FR (occurrence: FR)
  Receive Date: 20220420
  Receipt Date: 20221018
  Transmission Date: 20230112
  Serious: Yes (Other)
  Sender: FDA-Public Use
  Company Number: None

PATIENT
  Age: 43 Year
  Sex: Male

DRUGS (7)
  1. ALPRAZOLAM [Suspect]
     Active Substance: ALPRAZOLAM
     Indication: Alcohol detoxification
     Dosage: 200 MG, 1X/DAY
     Route: 048
     Dates: end: 20220327
  2. PIPERACILLIN SODIUM\TAZOBACTAM SODIUM [Suspect]
     Active Substance: PIPERACILLIN SODIUM\TAZOBACTAM SODIUM
     Indication: Fournier^s gangrene
     Dosage: 16 G, 1X/DAY
     Route: 042
     Dates: start: 20220322, end: 20220327
  3. PIPERACILLIN SODIUM\TAZOBACTAM SODIUM [Suspect]
     Active Substance: PIPERACILLIN SODIUM\TAZOBACTAM SODIUM
     Dosage: 24 G, 1X/DAY
     Route: 042
     Dates: start: 20220327, end: 20220328
  4. OXAZEPAM [Suspect]
     Active Substance: OXAZEPAM
     Indication: Alcohol detoxification
     Dosage: 25 MG, 1X/DAY (IF NEEDED)
     Route: 048
     Dates: end: 20220327
  5. ACUPAN [Suspect]
     Active Substance: NEFOPAM HYDROCHLORIDE
     Indication: Pain
     Dosage: 100 MG, (FREQUENCY: 24 HOURS)
     Route: 042
     Dates: end: 20220328
  6. FLUOXETINE [Suspect]
     Active Substance: FLUOXETINE HYDROCHLORIDE
     Indication: Mixed anxiety and depressive disorder
     Dosage: 20 MG, 1X/DAY
     Route: 048
  7. MORPHINE [Suspect]
     Active Substance: MORPHINE
     Indication: Pain
     Dosage: UNK
     Route: 042
     Dates: start: 20220322

REACTIONS (3)
  - Overdose [Not Recovered/Not Resolved]
  - Hallucination [Not Recovered/Not Resolved]
  - Psychomotor hyperactivity [Not Recovered/Not Resolved]

NARRATIVE: CASE EVENT DATE: 20220327
